FAERS Safety Report 8445511-7 (Version None)
Quarter: 2012Q2

REPORT INFORMATION
  Report Type: 
  Country: None (occurrence: None)
  Receive Date: 20120618
  Receipt Date: 20120608
  Transmission Date: 20120825
  Serious: Yes (Hospitalization)
  Sender: FDA-Public Use
  Company Number: DK-MERCK-1206USA01531

PATIENT
  Age: 71 Year
  Sex: Female

DRUGS (9)
  1. ZOCOR [Suspect]
     Indication: HYPERCHOLESTEROLAEMIA
     Route: 048
     Dates: end: 20060628
  2. IMATINIB MESYLATE [Suspect]
     Indication: CHRONIC MYELOID LEUKAEMIA
     Route: 048
     Dates: start: 20060622, end: 20060630
  3. ZOCOR [Suspect]
     Indication: HYPERTENSION
     Route: 048
     Dates: end: 20060628
  4. IMATINIB MESYLATE [Suspect]
     Route: 048
     Dates: start: 20060522, end: 20060611
  5. CENTYL [Concomitant]
     Route: 048
  6. IMATINIB MESYLATE [Suspect]
     Route: 048
     Dates: start: 20060918
  7. ZOLPIDEM TATRATE [Concomitant]
     Route: 048
  8. ASPIRIN [Concomitant]
     Route: 048
  9. NEXIUM [Concomitant]
     Route: 065

REACTIONS (11)
  - HEPATIC ENZYME ABNORMAL [None]
  - BLOOD CREATINE PHOSPHOKINASE INCREASED [None]
  - CARDIOTOXICITY [None]
  - MUSCULAR WEAKNESS [None]
  - ALANINE AMINOTRANSFERASE INCREASED [None]
  - MYOGLOBIN BLOOD INCREASED [None]
  - DRUG INTERACTION [None]
  - MYOSITIS [None]
  - GAIT DISTURBANCE [None]
  - MUSCLE ENZYME INCREASED [None]
  - RHABDOMYOLYSIS [None]
